FAERS Safety Report 7532626-0 (Version None)
Quarter: 2011Q2

REPORT INFORMATION
  Report Type: 
  Country: None (occurrence: None)
  Receive Date: 20110608
  Receipt Date: 20110603
  Transmission Date: 20111010
  Serious: Yes (Other)
  Sender: FDA-Public Use
  Company Number: CHPA2011US07595

PATIENT
  Sex: Female

DRUGS (1)
  1. NICOTINE [Suspect]
     Dosage: UNK, UNK
     Route: 062

REACTIONS (3)
  - OVERDOSE [None]
  - TREATMENT NONCOMPLIANCE [None]
  - MYOCARDIAL INFARCTION [None]
